FAERS Safety Report 7072521-7 (Version None)
Quarter: 2010Q4

REPORT INFORMATION
  Report Type: 
  Country: None (occurrence: None)
  Receive Date: 20101029
  Receipt Date: 20100205
  Transmission Date: 20110411
  Serious: No
  Sender: FDA-Public Use
  Company Number: A0843241A

PATIENT
  Age: 84 Year
  Sex: Male

DRUGS (6)
  1. ADVAIR DISKUS 100/50 [Suspect]
     Dosage: 1PUFF TWICE PER DAY
     Route: 055
     Dates: start: 20100129
  2. FUROSEMIDE [Concomitant]
  3. AMLODIPINE [Concomitant]
  4. BETA BLOCKER [Concomitant]
  5. ALLOPURINOL [Concomitant]
  6. DIABETES MEDICATION [Concomitant]

REACTIONS (2)
  - ABDOMINAL DISCOMFORT [None]
  - DIZZINESS [None]
